FAERS Safety Report 6697752-7 (Version None)
Quarter: 2010Q2

REPORT INFORMATION
  Report Type: 
  Country: None (occurrence: None)
  Receive Date: 20100423
  Receipt Date: 20100409
  Transmission Date: 20101027
  Serious: Yes (Death, Other)
  Sender: FDA-Public Use
  Company Number: 2010S1002201

PATIENT
  Age: 74 Year
  Sex: Female

DRUGS (1)
  1. PHOSPHOSODA FLAVOR NOT SPECIFIED [Suspect]
     Indication: COLONOSCOPY
     Dosage: PO
     Route: 048
     Dates: start: 20090730, end: 20090730

REACTIONS (4)
  - DIALYSIS [None]
  - DRUG TOXICITY [None]
  - NEPHROPATHY [None]
  - RENAL FAILURE [None]
